FAERS Safety Report 20697156 (Version 2)
Quarter: 2022Q3

REPORT INFORMATION
  Report Type: Spontaneous
  Country: US (occurrence: US)
  Receive Date: 20220411
  Receipt Date: 20220801
  Transmission Date: 20221026
  Serious: No
  Sender: FDA-Public Use
  Company Number: US-BRISTOL-MYERS SQUIBB COMPANY-2022-015360

PATIENT
  Age: 75 Year
  Sex: Male

DRUGS (11)
  1. INREBIC [Suspect]
     Active Substance: FEDRATINIB HYDROCHLORIDE
     Indication: Myelofibrosis
     Dosage: FREQUENCY-TAKE 4 CAPSULES (400 MG) BY MOUTH DAILY.
     Route: 048
     Dates: start: 20220201
  2. EXCEDRIN EXT TAB -250-250 [Concomitant]
     Indication: Product used for unknown indication
     Dosage: TAB -250-250
     Route: 065
  3. FISH OIL CAP 1000MG [Concomitant]
     Indication: Product used for unknown indication
     Route: 065
  4. MULTIVITAMIN TAB [Concomitant]
     Indication: Product used for unknown indication
     Route: 065
  5. ASPIRIN TAB 81 MG [Concomitant]
     Indication: Product used for unknown indication
     Route: 065
  6. DUTASTERIDE CAP 0.5 MG [Concomitant]
     Indication: Product used for unknown indication
     Route: 065
  7. JAKAFI TAB 10 MG [Concomitant]
     Indication: Product used for unknown indication
  8. ROSUVASTATIN TAB 10 MG [Concomitant]
     Indication: Product used for unknown indication
     Route: 065
  9. TAMSULOSIN H  CAP 0.4 MG [Concomitant]
     Indication: Product used for unknown indication
     Route: 065
  10. VITAMIN D TAB 25 MCG 1000 [Concomitant]
     Indication: Myelofibrosis
     Dosage: TAB 25 MCG 1000
     Route: 048
  11. MAGNESIUM TAB 400MG [Concomitant]
     Indication: Product used for unknown indication
     Route: 065

REACTIONS (1)
  - Product dose omission issue [Unknown]
